FAERS Safety Report 24637645 (Version 1)
Quarter: 2024Q4

REPORT INFORMATION
  Report Type: Spontaneous
  Country: GB (occurrence: GB)
  Receive Date: 20241119
  Receipt Date: 20241119
  Transmission Date: 20250115
  Serious: Yes (Other)
  Sender: SANDOZ
  Company Number: GB-SHIRE-CA201925146

PATIENT
  Age: 53 Year
  Sex: Male

DRUGS (186)
  1. ADALIMUMAB [Suspect]
     Active Substance: ADALIMUMAB
     Indication: Deep vein thrombosis
     Dosage: 8 DOSAGE FORM (SUBCUTANEOUS)
     Route: 058
     Dates: start: 201707
  2. ADALIMUMAB [Suspect]
     Active Substance: ADALIMUMAB
     Indication: Crohn^s disease
     Dosage: 8 DOSAGE FORM (SUBCUTANEOUS)
     Route: 058
     Dates: start: 201707
  3. ALBENDAZOLE [Suspect]
     Active Substance: ALBENDAZOLE
     Indication: Colitis ulcerative
     Dosage: UNK
     Route: 042
     Dates: start: 2017, end: 2017
  4. ALBENDAZOLE [Suspect]
     Active Substance: ALBENDAZOLE
     Indication: Deep vein thrombosis
  5. ASACOL [Suspect]
     Active Substance: MESALAMINE
     Dosage: 12 DOSAGE FORM, QD (1 EVERY 1 DAYS)
     Route: 065
  6. ASACOL [Suspect]
     Active Substance: MESALAMINE
     Dosage: 2.4 G, QD
     Route: 065
     Dates: start: 20161001
  7. ASACOL [Suspect]
     Active Substance: MESALAMINE
     Indication: Colitis ulcerative
     Dosage: 2.4 GRAM, QD
     Route: 065
     Dates: start: 20161001
  8. ASACOL [Suspect]
     Active Substance: MESALAMINE
     Dosage: 3 G, QD
     Route: 065
     Dates: start: 20161001
  9. ASACOL [Suspect]
     Active Substance: MESALAMINE
     Dosage: 3 G, QD (1 EVERY 1 DAYS)
     Route: 065
  10. ASACOL [Suspect]
     Active Substance: MESALAMINE
     Dosage: 3 DOSAGE FORM, BID (2 EVERY 1 DAYS)
     Route: 065
     Dates: start: 201610
  11. ASACOL [Suspect]
     Active Substance: MESALAMINE
     Dosage: 4.8 G, QD
     Route: 065
     Dates: start: 20161001
  12. ASACOL [Suspect]
     Active Substance: MESALAMINE
     Dosage: 4.8 G, QD 3 TABLETS TWO TIMES A DAY
     Route: 065
     Dates: start: 20161001
  13. ASACOL [Suspect]
     Active Substance: MESALAMINE
     Dosage: 50 MG
     Route: 065
  14. ASACOL [Suspect]
     Active Substance: MESALAMINE
     Dosage: 6 DOSAGE FORM, QD
     Route: 065
     Dates: start: 20161001
  15. ASACOL [Suspect]
     Active Substance: MESALAMINE
     Dosage: 8 DOSAGE FORM, QD
     Route: 065
     Dates: start: 20170717
  16. ASACOL [Suspect]
     Active Substance: MESALAMINE
     Dosage: UNK
     Route: 065
  17. BUDESONIDE [Suspect]
     Active Substance: BUDESONIDE
     Dosage: 1 DOSAGE FORM, QD
     Route: 048
     Dates: start: 201707
  18. BUDESONIDE [Suspect]
     Active Substance: BUDESONIDE
     Indication: Colitis ulcerative
     Dosage: 1 DOSAGE FORM, QD
     Route: 048
     Dates: start: 201707
  19. BUDESONIDE [Suspect]
     Active Substance: BUDESONIDE
     Dosage: 8 DOSAGE FORM, QD
     Route: 065
     Dates: start: 201707
  20. BUDESONIDE [Suspect]
     Active Substance: BUDESONIDE
     Indication: Product used for unknown indication
     Dosage: 8 DOSAGE FORM, Q8WK
     Route: 048
     Dates: start: 200707
  21. BUDESONIDE [Suspect]
     Active Substance: BUDESONIDE
     Dosage: UNK (1 EVERY 8 WEEKS)
     Route: 048
  22. BUDESONIDE [Suspect]
     Active Substance: BUDESONIDE
     Dosage: UNK (1 EVERY 8 WEEKS)
     Route: 048
  23. BUDESONIDE [Suspect]
     Active Substance: BUDESONIDE
     Dosage: UNK (TABLET 1 EVERY 8 WEEKS)
     Route: 065
  24. CORTIFOAM [Suspect]
     Active Substance: HYDROCORTISONE ACETATE
     Dosage: 1 DOSAGE FORM, QD
     Route: 048
     Dates: start: 201707
  25. CORTIFOAM [Suspect]
     Active Substance: HYDROCORTISONE ACETATE
     Dosage: 1 DOSAGE FORM, QD
     Route: 048
     Dates: start: 201707
  26. CORTIFOAM [Suspect]
     Active Substance: HYDROCORTISONE ACETATE
     Indication: Colitis ulcerative
     Dosage: 8 DOSAGE FORM, Q8 WEEKS (DOSAGE FORM: AEROSOL, FOAM)
     Route: 048
     Dates: start: 200707
  27. CORTIFOAM [Suspect]
     Active Substance: HYDROCORTISONE ACETATE
     Dosage: UNK (FORMULATION: AEROSOL, FOAM)
     Route: 065
  28. HYDROCORTISONE ACETATE [Suspect]
     Active Substance: HYDROCORTISONE ACETATE
     Indication: Colitis ulcerative
     Dosage: 1 DOSAGE FORM, QD
     Route: 048
     Dates: start: 20170701
  29. HYDROCORTISONE ACETATE [Suspect]
     Active Substance: HYDROCORTISONE ACETATE
     Dosage: 1 DOSAGE FORM, QD
     Route: 048
  30. HYDROCORTISONE ACETATE [Suspect]
     Active Substance: HYDROCORTISONE ACETATE
     Dosage: 8 DOSAGE FORM, QD
     Route: 048
  31. HYDROCORTISONE ACETATE [Suspect]
     Active Substance: HYDROCORTISONE ACETATE
     Dosage: 8 DOSAGE FORM
     Route: 048
     Dates: start: 20170701
  32. HYDROCORTISONE ACETATE [Suspect]
     Active Substance: HYDROCORTISONE ACETATE
     Indication: Product used for unknown indication
     Dosage: 8 DOSAGE FORM, Q8WK
     Route: 048
     Dates: start: 200707
  33. HYDROCORTISONE ACETATE [Suspect]
     Active Substance: HYDROCORTISONE ACETATE
     Dosage: 8 DOSAGE FORM, Q8WK (1 EVERY 8 WEEKS)
     Route: 048
  34. HYDROCORTISONE ACETATE [Suspect]
     Active Substance: HYDROCORTISONE ACETATE
     Dosage: UNK
     Route: 048
  35. HYDROCORTISONE ACETATE [Suspect]
     Active Substance: HYDROCORTISONE ACETATE
     Dosage: UNK,  Q8WK (1 EVERY 8 WEEKS)
     Route: 048
  36. HYDROCORTISONE ACETATE [Suspect]
     Active Substance: HYDROCORTISONE ACETATE
     Dosage: UNK,  Q8WK (1 EVERY 8 WEEKS)
     Route: 048
  37. ENTYVIO [Suspect]
     Active Substance: VEDOLIZUMAB
     Dosage: 50 MG (FORMULATION: POWDER FOR SOLUTION INTRAVENOUS)
     Route: 065
  38. ENTYVIO [Suspect]
     Active Substance: VEDOLIZUMAB
     Indication: Product used for unknown indication
     Dosage: 8 DOSAGE FORM, Q8WK (1 EVERY 8 WEEKS))
     Route: 042
  39. ENTYVIO [Suspect]
     Active Substance: VEDOLIZUMAB
     Dosage: UNK, QD
     Route: 042
     Dates: start: 2017, end: 2017
  40. ENTYVIO [Suspect]
     Active Substance: VEDOLIZUMAB
     Dosage: UNK, QD (1 EVERY 1 DAYS)
     Route: 048
  41. ENTYVIO [Suspect]
     Active Substance: VEDOLIZUMAB
     Dosage: 200 UNK
     Route: 048
     Dates: start: 2017, end: 2017
  42. ENTYVIO [Suspect]
     Active Substance: VEDOLIZUMAB
     Indication: Colitis ulcerative
     Dosage: UNK
     Route: 042
  43. ENTYVIO [Suspect]
     Active Substance: VEDOLIZUMAB
     Dosage: UNK
     Route: 042
  44. ENTYVIO [Suspect]
     Active Substance: VEDOLIZUMAB
     Dosage: UNK
     Route: 065
  45. ENTYVIO [Suspect]
     Active Substance: VEDOLIZUMAB
     Dosage: UNK (DOSE FORM: 200)
     Route: 048
     Dates: start: 2017, end: 2017
  46. ENTYVIO [Suspect]
     Active Substance: VEDOLIZUMAB
     Indication: Deep vein thrombosis
     Dosage: UNK(DOSE FORM:200)
     Route: 042
     Dates: start: 2017, end: 2017
  47. HYDROCORTISONE [Suspect]
     Active Substance: HYDROCORTISONE
     Dosage: 3 DOSAGE FORM, BID
     Route: 048
  48. HYDROCORTISONE [Suspect]
     Active Substance: HYDROCORTISONE
     Dosage: 8 DOSAGE FORM, QD
     Route: 048
     Dates: start: 201807
  49. HYDROCORTISONE [Suspect]
     Active Substance: HYDROCORTISONE
     Indication: Colitis ulcerative
     Dosage: 8 DOSAGE FORM, Q8WK
     Route: 048
     Dates: start: 201807
  50. HYDROCORTISONE [Suspect]
     Active Substance: HYDROCORTISONE
     Indication: Colitis ulcerative
     Dosage: 8 DOSAGE FORM, Q8WK
     Route: 048
     Dates: start: 2017
  51. HYDROCORTISONE [Suspect]
     Active Substance: HYDROCORTISONE
     Dosage: 8 DOSAGE FORM, Q8WK
     Route: 048
     Dates: start: 2018
  52. HYDROCORTISONE [Suspect]
     Active Substance: HYDROCORTISONE
     Dosage: 8 DOSAGE FORM, Q8WK
     Route: 048
  53. HYDROCORTISONE [Suspect]
     Active Substance: HYDROCORTISONE
     Dosage: UNK, QD
     Route: 048
  54. HYDROCORTISONE [Suspect]
     Active Substance: HYDROCORTISONE
     Dosage: UNK (1 EVERY 6 WEEKS)
     Route: 065
  55. HYDROCORTISONE [Suspect]
     Active Substance: HYDROCORTISONE
     Dosage: UNK, Q8WK
     Route: 048
  56. HYDROCORTISONE ACETATE [Suspect]
     Active Substance: HYDROCORTISONE ACETATE
     Indication: Crohn^s disease
     Dosage: 1 DOSAGE FORM, QD
     Route: 048
     Dates: start: 201807
  57. HYDROCORTISONE ACETATE [Suspect]
     Active Substance: HYDROCORTISONE ACETATE
     Dosage: 8 DOSAGE FORM, QD
     Route: 048
     Dates: start: 2017
  58. HYDROCORTISONE ACETATE [Suspect]
     Active Substance: HYDROCORTISONE ACETATE
     Dosage: 8 DOSAGE FORM, QD
     Route: 048
     Dates: start: 201807
  59. HYDROCORTISONE ACETATE [Suspect]
     Active Substance: HYDROCORTISONE ACETATE
     Dosage: 8 DOSAGE FORM, Q8W
     Route: 048
     Dates: start: 201707
  60. HYDROCORTISONE ACETATE [Suspect]
     Active Substance: HYDROCORTISONE ACETATE
     Dosage: 8 DOSAGE FORM, Q8WK
     Route: 048
     Dates: start: 201807
  61. HYDROCORTISONE ACETATE [Suspect]
     Active Substance: HYDROCORTISONE ACETATE
     Indication: Colitis ulcerative
     Dosage: UNK UNK, QD
     Route: 048
  62. HYDROCORTISONE ACETATE [Suspect]
     Active Substance: HYDROCORTISONE ACETATE
     Dosage: UNK
     Route: 042
  63. HYDROCORTISONE ACETATE [Suspect]
     Active Substance: HYDROCORTISONE ACETATE
     Dosage: UNK
     Route: 065
  64. HYDROCORTISONE ACETATE [Suspect]
     Active Substance: HYDROCORTISONE ACETATE
     Dosage: UNK (1 EVERY 6 WEEKS)
     Route: 065
  65. HYDROCORTISONE ACETATE [Suspect]
     Active Substance: HYDROCORTISONE ACETATE
     Dosage: UNK, Q6WK (1 EVERY 6 WEEKS)
     Route: 048
  66. INFLIXIMAB [Suspect]
     Active Substance: INFLIXIMAB
     Dosage: 5 MG/KG (1 EVERY 8 WEEKS)
     Route: 042
  67. INFLIXIMAB [Suspect]
     Active Substance: INFLIXIMAB
     Dosage: 5 MG/KG, Q8WK
     Route: 042
     Dates: start: 20170101, end: 20170901
  68. INFLIXIMAB [Suspect]
     Active Substance: INFLIXIMAB
     Dosage: 5 MG/KG, Q8WK
     Route: 042
     Dates: start: 20171019
  69. INFLIXIMAB [Suspect]
     Active Substance: INFLIXIMAB
     Dosage: 5 MILLIGRAM/KILOGRAM, Q8WK
     Route: 042
     Dates: start: 20171019
  70. INFLIXIMAB [Suspect]
     Active Substance: INFLIXIMAB
     Indication: Colitis ulcerative
     Dosage: UNK, Q8WK
     Route: 042
     Dates: start: 20170101, end: 20170901
  71. INFLIXIMAB [Suspect]
     Active Substance: INFLIXIMAB
     Dosage: 7 MG/KG,Q8WK
     Route: 042
  72. INFLIXIMAB [Suspect]
     Active Substance: INFLIXIMAB
     Dosage: 8 DOSAGE FORM
     Route: 048
     Dates: start: 201707
  73. INFLIXIMAB [Suspect]
     Active Substance: INFLIXIMAB
     Indication: Crohn^s disease
     Dosage: UNK
     Route: 042
     Dates: start: 201709
  74. INFLIXIMAB [Suspect]
     Active Substance: INFLIXIMAB
     Dosage: UNK
     Route: 042
  75. INFLIXIMAB [Suspect]
     Active Substance: INFLIXIMAB
     Dosage: UNK
     Route: 065
  76. INFLIXIMAB [Suspect]
     Active Substance: INFLIXIMAB
     Dosage: UNK (0, 2, 6 WEEKS, THEN EVERY 8 WEEKS
     Route: 042
     Dates: start: 201709
  77. INFLIXIMAB [Suspect]
     Active Substance: INFLIXIMAB
     Dosage: UNK (1 EVERY 6 WEEKS)
     Route: 042
  78. INFLIXIMAB [Suspect]
     Active Substance: INFLIXIMAB
     Dosage: UNK, Q2WK
     Route: 042
  79. INFLIXIMAB [Suspect]
     Active Substance: INFLIXIMAB
     Dosage: UNK, Q6WK
     Route: 042
     Dates: start: 201709
  80. INFLIXIMAB [Suspect]
     Active Substance: INFLIXIMAB
     Dosage: UNK, Q8WK (1 EVERY 8 WEEKS)
     Route: 042
  81. MESALAMINE [Suspect]
     Active Substance: MESALAMINE
     Dosage: 2.4 G, QD
     Route: 048
  82. MESALAMINE [Suspect]
     Active Substance: MESALAMINE
     Dosage: 2.4 G, QD
     Route: 065
     Dates: start: 20161001
  83. MESALAMINE [Suspect]
     Active Substance: MESALAMINE
     Dosage: 2.4 G, QD, 0.8 G, 3 TABLETS TWO TIMES A DAY (4.8 G
     Route: 065
     Dates: start: 20161001
  84. MESALAMINE [Suspect]
     Active Substance: MESALAMINE
     Dosage: 2.4 GRAM, QD
     Route: 065
     Dates: start: 20161001
  85. MESALAMINE [Suspect]
     Active Substance: MESALAMINE
     Dosage: 3 DOSAGE FORM, BID
     Route: 065
     Dates: start: 201610
  86. MESALAMINE [Suspect]
     Active Substance: MESALAMINE
     Dosage: 4.8 G, QD
     Route: 065
  87. MESALAMINE [Suspect]
     Active Substance: MESALAMINE
     Dosage: 4.8 MG
     Route: 065
     Dates: start: 20170101
  88. MESALAMINE [Suspect]
     Active Substance: MESALAMINE
     Dosage: 50 MG
     Route: 048
     Dates: start: 20170101, end: 20170901
  89. MESALAMINE [Suspect]
     Active Substance: MESALAMINE
     Indication: Product used for unknown indication
     Dosage: 50 MG
     Route: 065
     Dates: start: 20160101, end: 20161001
  90. MESALAMINE [Suspect]
     Active Substance: MESALAMINE
     Dosage: 50 MG
     Route: 065
     Dates: start: 20170101, end: 20170901
  91. MESALAMINE [Suspect]
     Active Substance: MESALAMINE
     Dosage: 50 MG
     Route: 065
     Dates: start: 2009
  92. MESALAMINE [Suspect]
     Active Substance: MESALAMINE
     Dosage: 50 MG
     Route: 065
  93. MESALAMINE [Suspect]
     Active Substance: MESALAMINE
     Indication: Colitis ulcerative
     Dosage: 50 MILLIGRAM
     Route: 065
     Dates: start: 20160101, end: 20161001
  94. MESALAMINE [Suspect]
     Active Substance: MESALAMINE
     Indication: Colitis ulcerative
     Dosage: 50 MILLIGRAM
     Route: 065
     Dates: start: 20170101, end: 20170901
  95. MESALAMINE [Suspect]
     Active Substance: MESALAMINE
     Dosage: 6 DOSAGE FORM, QD
     Route: 065
     Dates: start: 20161001
  96. MESALAMINE [Suspect]
     Active Substance: MESALAMINE
     Dosage: 6 DOSAGE FORM, QD (0.8 G, 3 TABLETS TWO TIMES A DAY (4.8
     Route: 065
     Dates: start: 20161001
  97. MESALAMINE [Suspect]
     Active Substance: MESALAMINE
     Dosage: 8 DOSAGE FORM, QD
     Route: 048
     Dates: start: 201707
  98. MESALAMINE [Suspect]
     Active Substance: MESALAMINE
     Dosage: 8 DOSAGE FORM Q8WK
     Route: 048
     Dates: start: 201707
  99. MESALAMINE [Suspect]
     Active Substance: MESALAMINE
     Dosage: 8 DOSAGE FORM, Q8WK
     Route: 048
     Dates: start: 200707
  100. MESALAMINE [Suspect]
     Active Substance: MESALAMINE
     Dosage: 8 DOSAGE FORM,Q8WK
     Route: 065
     Dates: start: 201707
  101. MESALAMINE [Suspect]
     Active Substance: MESALAMINE
     Dosage: UNK, QD
     Route: 048
  102. MESALAMINE [Suspect]
     Active Substance: MESALAMINE
     Dosage: 4.8
     Route: 065
     Dates: start: 201709, end: 2017
  103. MESALAMINE [Suspect]
     Active Substance: MESALAMINE
     Dosage: UNK
     Route: 048
  104. MESALAMINE [Suspect]
     Active Substance: MESALAMINE
     Dosage: UNK
     Route: 065
     Dates: start: 20160101, end: 20161001
  105. MESALAMINE [Suspect]
     Active Substance: MESALAMINE
     Dosage: UNK
     Route: 065
     Dates: start: 20170101, end: 20170901
  106. MESALAMINE [Suspect]
     Active Substance: MESALAMINE
     Dosage: UNK
     Route: 065
     Dates: start: 20170101, end: 20170901
  107. MESALAMINE [Suspect]
     Active Substance: MESALAMINE
     Dosage: UNK
     Route: 065
     Dates: start: 20170101, end: 20171001
  108. MESALAMINE [Suspect]
     Active Substance: MESALAMINE
     Dosage: UNK
     Route: 065
     Dates: start: 20170101, end: 20210901
  109. MESALAMINE [Suspect]
     Active Substance: MESALAMINE
     Dosage: UNK
     Route: 065
     Dates: start: 2017, end: 201709
  110. MESALAMINE [Suspect]
     Active Substance: MESALAMINE
     Dosage: UNK
     Route: 065
     Dates: start: 201601, end: 201610
  111. MESALAMINE [Suspect]
     Active Substance: MESALAMINE
     Dosage: UNK
     Route: 065
     Dates: start: 201709, end: 201709
  112. MESALAMINE [Suspect]
     Active Substance: MESALAMINE
     Dosage: UNK
     Route: 065
     Dates: start: 202109, end: 202109
  113. MESALAMINE [Suspect]
     Active Substance: MESALAMINE
     Dosage: UNK
     Route: 065
  114. MESALAMINE [Suspect]
     Active Substance: MESALAMINE
     Dosage: 8 DOSAGE FORM, Q8W
     Route: 048
     Dates: start: 201707
  115. MESALAMINE [Suspect]
     Active Substance: MESALAMINE
     Indication: Product used for unknown indication
     Dosage: UNK
     Route: 048
     Dates: start: 20160101, end: 20161001
  116. MESALAMINE [Suspect]
     Active Substance: MESALAMINE
     Indication: Colitis ulcerative
     Dosage: UNK
     Route: 065
     Dates: start: 20170101, end: 20170901
  117. MESALAMINE [Suspect]
     Active Substance: MESALAMINE
     Dosage: 2.4 G, QD
     Route: 065
  118. MESALAMINE [Suspect]
     Active Substance: MESALAMINE
     Dosage: 2.4 G, QD (THERAPY DURATION: 10.0 MONTHS)
     Route: 065
  119. MESALAMINE [Suspect]
     Active Substance: MESALAMINE
     Dosage: 3 G, QD
     Route: 065
  120. MESALAMINE [Suspect]
     Active Substance: MESALAMINE
     Dosage: 4.8 MG, QD
     Route: 065
  121. MESALAMINE [Suspect]
     Active Substance: MESALAMINE
     Dosage: 4.8 MG, QD
     Route: 065
  122. MESALAMINE [Suspect]
     Active Substance: MESALAMINE
     Dosage: 50 MG
     Route: 065
  123. MESALAMINE [Suspect]
     Active Substance: MESALAMINE
     Dosage: 50 MG (THERAPY DURATION: 244.0 DAYS)
     Route: 048
  124. MESALAMINE [Suspect]
     Active Substance: MESALAMINE
     Dosage: 50 MG (THERAPY DURATION: 275.0 DAYS)
     Route: 048
  125. MESALAMINE [Suspect]
     Active Substance: MESALAMINE
     Dosage: 50 MG (THERAPY DURATION: 487)
     Route: 065
  126. MESALAMINE [Suspect]
     Active Substance: MESALAMINE
     Dosage: 6 DOSAGE FORM, QD
     Route: 048
  127. MESALAMINE [Suspect]
     Active Substance: MESALAMINE
     Dosage: 6 DOSAGE FORM, QD
     Route: 065
  128. MESALAMINE [Suspect]
     Active Substance: MESALAMINE
     Dosage: 6 DOSAGE FORM, QD
     Route: 065
  129. MESALAMINE [Suspect]
     Active Substance: MESALAMINE
     Dosage: 8 DOSAGE FORM
     Route: 048
  130. MESALAMINE [Suspect]
     Active Substance: MESALAMINE
     Dosage: UNK
     Route: 048
  131. MESALAMINE [Suspect]
     Active Substance: MESALAMINE
     Dosage: UNK, QD
     Route: 065
  132. MESALAMINE [Suspect]
     Active Substance: MESALAMINE
     Dosage: UNK
     Route: 065
  133. MESALAMINE [Suspect]
     Active Substance: MESALAMINE
     Dosage: UNK
     Route: 065
  134. MESALAMINE [Suspect]
     Active Substance: MESALAMINE
     Dosage: UNK (THERAPY DURATION: 1 DAYS)
     Route: 065
  135. MESALAMINE [Suspect]
     Active Substance: MESALAMINE
     Dosage: UNK (THERAPY DURATION: 1.0 MONTHS)
     Route: 065
  136. MESALAMINE [Suspect]
     Active Substance: MESALAMINE
     Dosage: UNK (THERAPY DURATION: 243.0)
     Route: 065
  137. MESALAMINE [Suspect]
     Active Substance: MESALAMINE
     Dosage: UNK (THERAPY DURATION: 244.0 DAYS)
     Route: 065
  138. MESALAMINE [Suspect]
     Active Substance: MESALAMINE
     Dosage: UNK (THERAPY DURATION: 274.0 DAYS)
     Route: 065
  139. MESALAMINE [Suspect]
     Active Substance: MESALAMINE
     Dosage: UNK (THERAPY DURATION: 275.0 DAYS)
     Route: 048
  140. MESALAMINE [Suspect]
     Active Substance: MESALAMINE
     Indication: Colitis ulcerative
     Dosage: UNK (THERAPY DURSTION: 1.0 MONTHS)
     Route: 065
  141. MESALAMINE [Suspect]
     Active Substance: MESALAMINE
     Dosage: UNK, Q8W (1 EVERY 8 WEEKS)
     Route: 048
  142. PARA-AMINOSALICYLIC ACID [Suspect]
     Active Substance: AMINOSALICYLIC ACID
     Indication: Colitis ulcerative
     Dosage: UNK
     Route: 048
  143. PARA-AMINOSALICYLIC ACID [Suspect]
     Active Substance: AMINOSALICYLIC ACID
     Indication: Deep vein thrombosis
     Dosage: UNK
     Route: 048
  144. PREDNISONE [Suspect]
     Active Substance: PREDNISONE
     Dosage: 40 MG, QD
     Route: 065
  145. PREDNISONE [Suspect]
     Active Substance: PREDNISONE
     Dosage: 50 MG
     Route: 065
  146. PREDNISONE [Suspect]
     Active Substance: PREDNISONE
     Dosage: 50 MG
     Route: 065
  147. PREDNISONE [Suspect]
     Active Substance: PREDNISONE
     Indication: Colitis ulcerative
     Dosage: 50 MILLIGRAM
     Route: 065
     Dates: start: 2009, end: 2009
  148. PREDNISONE [Suspect]
     Active Substance: PREDNISONE
     Dosage: UNK
     Route: 065
     Dates: start: 2017, end: 2017
  149. PREDNISONE [Suspect]
     Active Substance: PREDNISONE
     Dosage: UNK
     Route: 065
  150. PREDNISONE [Suspect]
     Active Substance: PREDNISONE
     Dosage: UNK
     Route: 065
  151. PREDNISONE [Suspect]
     Active Substance: PREDNISONE
     Dosage: UNK, (TAPERED DOSE)
     Route: 065
     Dates: start: 2009
  152. SULFASALAZINE [Suspect]
     Active Substance: SULFASALAZINE
     Dosage: 3 MG, QD
     Route: 065
  153. SULFASALAZINE [Suspect]
     Active Substance: SULFASALAZINE
     Dosage: 5 MG, QD
     Route: 065
  154. SULFASALAZINE [Suspect]
     Active Substance: SULFASALAZINE
     Indication: Arthritis
     Dosage: UNK
     Route: 065
     Dates: start: 2009, end: 2016
  155. SULFASALAZINE [Suspect]
     Active Substance: SULFASALAZINE
     Indication: Colitis ulcerative
     Dosage: UNK
     Route: 065
     Dates: start: 20091001, end: 20161001
  156. SULFASALAZINE [Suspect]
     Active Substance: SULFASALAZINE
     Dosage: UNK
     Route: 065
     Dates: start: 20160101, end: 20160101
  157. SULFASALAZINE [Suspect]
     Active Substance: SULFASALAZINE
     Dosage: UNK
     Route: 065
     Dates: start: 201709, end: 201709
  158. SULFASALAZINE [Suspect]
     Active Substance: SULFASALAZINE
     Dosage: UNK
     Route: 065
     Dates: end: 201709
  159. SULFASALAZINE [Suspect]
     Active Substance: SULFASALAZINE
     Dosage: UNK (THERAPY DURATION: 1.0 DAYS)
     Route: 065
  160. SULFASALAZINE [Suspect]
     Active Substance: SULFASALAZINE
     Dosage: UNK (THERAPY DURATION: 1.0 MONTHS)
     Route: 065
  161. SULFASALAZINE [Suspect]
     Active Substance: SULFASALAZINE
     Dosage: UNK (THERAPY DURATION: 7.0 YEARS)
     Route: 065
  162. SULFASALAZINE [Suspect]
     Active Substance: SULFASALAZINE
     Dosage: UNK (THERAPY DURATION: 8.0 YEARS)
     Route: 065
  163. SULFASALAZINE [Suspect]
     Active Substance: SULFASALAZINE
     Indication: Product used for unknown indication
     Dosage: UNK UNK, UNK
     Route: 065
     Dates: start: 20090101, end: 20160101
  164. VEDOLIZUMAB [Suspect]
     Active Substance: VEDOLIZUMAB
     Dosage: 1 DF, QD
     Route: 048
  165. VEDOLIZUMAB [Suspect]
     Active Substance: VEDOLIZUMAB
     Dosage: 1 DOSAGE FORM, QD
     Route: 048
  166. VEDOLIZUMAB [Suspect]
     Active Substance: VEDOLIZUMAB
     Dosage: UNK, QD
     Route: 048
  167. VEDOLIZUMAB [Suspect]
     Active Substance: VEDOLIZUMAB
     Dosage: UNK
     Route: 042
     Dates: start: 2017, end: 2017
  168. VEDOLIZUMAB [Suspect]
     Active Substance: VEDOLIZUMAB
     Dosage: UNK
     Route: 042
  169. VEDOLIZUMAB [Suspect]
     Active Substance: VEDOLIZUMAB
     Dosage: UNK
     Route: 042
  170. VEDOLIZUMAB [Suspect]
     Active Substance: VEDOLIZUMAB
     Dosage: UNK
     Route: 042
  171. VEDOLIZUMAB [Suspect]
     Active Substance: VEDOLIZUMAB
     Indication: Colitis ulcerative
     Dosage: UNK
     Route: 048
     Dates: start: 201601, end: 201610
  172. VEDOLIZUMAB [Suspect]
     Active Substance: VEDOLIZUMAB
     Dosage: UNK
     Route: 048
     Dates: start: 2017, end: 2017
  173. VEDOLIZUMAB [Suspect]
     Active Substance: VEDOLIZUMAB
     Dosage: UNK
     Route: 048
  174. VEDOLIZUMAB [Suspect]
     Active Substance: VEDOLIZUMAB
     Dosage: UNK
     Route: 048
  175. VEDOLIZUMAB [Suspect]
     Active Substance: VEDOLIZUMAB
     Indication: Deep vein thrombosis
     Dosage: UNK
     Route: 065
     Dates: end: 2017
  176. WARFARIN [Suspect]
     Active Substance: WARFARIN
     Dosage: 1 DOSAGE FORM, QD
     Route: 065
     Dates: start: 201707
  177. WARFARIN [Suspect]
     Active Substance: WARFARIN
     Dosage: 8 DOSAGE FORM, Q8WK
     Route: 048
     Dates: start: 201707
  178. WARFARIN [Suspect]
     Active Substance: WARFARIN
     Indication: Deep vein thrombosis
     Dosage: UNK
     Route: 065
     Dates: start: 2009, end: 2009
  179. WARFARIN [Suspect]
     Active Substance: WARFARIN
     Dosage: UNK (TAPERED DOSE)
     Route: 065
     Dates: start: 2019
  180. WARFARIN [Suspect]
     Active Substance: WARFARIN
     Dosage: UNK TAPERED DOSE IN 2009 (EXACT DOSE UNKNOWN);;
     Route: 065
     Dates: end: 2009
  181. WARFARIN SODIUM [Suspect]
     Active Substance: WARFARIN SODIUM
     Dosage: 1 DOSAGE FORM, QD
     Route: 048
     Dates: start: 201707
  182. WARFARIN SODIUM [Suspect]
     Active Substance: WARFARIN SODIUM
     Dosage: 8 DOSAGE FORM, Q8WK
     Route: 048
     Dates: start: 201707
  183. WARFARIN SODIUM [Suspect]
     Active Substance: WARFARIN SODIUM
     Dosage: UNK, QD
     Route: 048
     Dates: end: 2019
  184. WARFARIN SODIUM [Suspect]
     Active Substance: WARFARIN SODIUM
     Dosage: UNK, Q8WK
     Route: 048
     Dates: end: 2019
  185. WARFARIN SODIUM [Suspect]
     Active Substance: WARFARIN SODIUM
     Indication: Deep vein thrombosis
     Dosage: UNK
     Route: 048
     Dates: start: 2009, end: 2009
  186. WARFARIN SODIUM [Suspect]
     Active Substance: WARFARIN SODIUM
     Indication: Colitis ulcerative
     Dosage: UNK
     Route: 065
     Dates: start: 2019

REACTIONS (8)
  - Deep vein thrombosis [Not Recovered/Not Resolved]
  - Bronchiectasis [Not Recovered/Not Resolved]
  - Weight decreased [Not Recovered/Not Resolved]
  - Stress [Not Recovered/Not Resolved]
  - Intentional product use issue [Not Recovered/Not Resolved]
  - Product use in unapproved indication [Unknown]
  - Inappropriate schedule of product administration [Not Recovered/Not Resolved]
  - Colitis ulcerative [Not Recovered/Not Resolved]
